FAERS Safety Report 8890276 (Version 1)
Quarter: 2012Q4

REPORT INFORMATION
  Report Type: 
  Country: US (occurrence: US)
  Receive Date: 20121107
  Receipt Date: 20121107
  Transmission Date: 20130627
  Serious: Yes (Hospitalization, Other)
  Sender: FDA-Public Use
  Company Number: US-PFIZER INC-2012277319

PATIENT
  Age: 70 Year
  Sex: Male

DRUGS (5)
  1. GABAPENTIN [Suspect]
     Indication: NEUROPATHY PERIPHERAL
     Dosage: 100 mg, daily
  2. GABAPENTIN [Suspect]
     Dosage: 300 mg, daily
  3. PERCOCET [Suspect]
     Indication: PAIN
     Dosage: UNK
  4. VICODIN [Suspect]
     Indication: PAIN
     Dosage: UNK
  5. ADVIL [Concomitant]
     Dosage: UNK

REACTIONS (13)
  - Rib fracture [Unknown]
  - Hallucination [Unknown]
  - Fall [Unknown]
  - Lung neoplasm malignant [Unknown]
  - Delusion [Unknown]
  - Coordination abnormal [Unknown]
  - Amnesia [Unknown]
  - Dyskinesia [Unknown]
  - Somnolence [Unknown]
  - Dizziness [Unknown]
  - Malaise [Unknown]
  - Fatigue [Unknown]
  - Insomnia [Unknown]
